FAERS Safety Report 16058494 (Version 1)
Quarter: 2019Q1

REPORT INFORMATION
  Report Type: Spontaneous
  Country: FR (occurrence: FR)
  Receive Date: 20190311
  Receipt Date: 20190311
  Transmission Date: 20190418
  Serious: Yes (Hospitalization)
  Sender: FDA-Public Use
  Company Number: FR-ALLERGAN-1909591US

PATIENT
  Sex: Female
  Weight: 65 kg

DRUGS (6)
  1. RISEDRONATE SODIUM - BP [Suspect]
     Active Substance: RISEDRONATE SODIUM
     Indication: MYOSITIS
     Dosage: 2 DF, QD
     Route: 048
     Dates: start: 20181210
  2. CORTANCYL [Concomitant]
     Active Substance: PREDNISONE
     Indication: MYOSITIS
     Dosage: 10 MG, QD
     Route: 048
  3. METOJECT [Concomitant]
     Active Substance: METHOTREXATE SODIUM
     Dosage: 1 DF, Q WEEK
     Route: 058
  4. BARACLUDE [Concomitant]
     Active Substance: ENTECAVIR
     Indication: HEPATITIS B REACTIVATION
     Dosage: 1 DF, QD
     Route: 048
  5. ZELITREX [Concomitant]
     Active Substance: VALACYCLOVIR HYDROCHLORIDE
     Dosage: 1 DF, QD
     Route: 048
  6. BACTRIM [Concomitant]
     Active Substance: SULFAMETHOXAZOLE\TRIMETHOPRIM
     Dosage: 3 DF, Q WEEK
     Route: 048

REACTIONS (4)
  - Asthenia [Recovered/Resolved]
  - Neck pain [Recovered/Resolved]
  - Myalgia [Recovered/Resolved]
  - Off label use [Unknown]

NARRATIVE: CASE EVENT DATE: 20181229
